FAERS Safety Report 8087007-0 (Version None)
Quarter: 2012Q1

REPORT INFORMATION
  Report Type: 
  Country: None (occurrence: None)
  Receive Date: 20120128
  Receipt Date: 20110520
  Transmission Date: 20120608
  Serious: No
  Sender: FDA-Public Use
  Company Number: US-ABBOTT-11P-163-0727506-00

PATIENT
  Sex: Male
  Weight: 59.02 kg

DRUGS (3)
  1. PRILOSEC [Concomitant]
     Indication: ABDOMINAL PAIN UPPER
     Route: 048
  2. ATIVAN [Concomitant]
     Indication: ANXIETY
     Route: 048
  3. HUMIRA [Suspect]
     Indication: CROHN'S DISEASE
     Route: 058
     Dates: start: 20100201

REACTIONS (2)
  - INJECTION SITE PRURITUS [None]
  - INJECTION SITE ERYTHEMA [None]
